FAERS Safety Report 22275075 (Version 2)
Quarter: 2024Q2

REPORT INFORMATION
  Report Type: Spontaneous
  Country: JP (occurrence: JP)
  Receive Date: 20230502
  Receipt Date: 20240422
  Transmission Date: 20240715
  Serious: Yes (Death, Hospitalization, Other)
  Sender: FDA-Public Use
  Company Number: JP-BAYER-2023A054680

PATIENT
  Age: 45 Year
  Sex: Female
  Weight: 79.6 kg

DRUGS (6)
  1. STIVARGA [Suspect]
     Active Substance: REGORAFENIB\REGORAFENIB MONOHYDRATE
     Indication: Colon cancer
     Dosage: DAILY DOSE 120 MG, 3 WEEKS ORAL MEDICATION, 1 WEEK OFF MEDICATION
     Route: 048
     Dates: start: 20230309, end: 20230329
  2. AZILSARTAN KAMEDOXOMIL [Concomitant]
     Active Substance: AZILSARTAN KAMEDOXOMIL
     Indication: Blood pressure management
     Dosage: 20 MG, QD,MORNING
     Route: 048
     Dates: start: 20221019, end: 20230427
  3. CODEINE [Concomitant]
     Active Substance: CODEINE
     Indication: Cough
     Dosage: 60 MG, TID
     Route: 048
     Dates: start: 20230301, end: 20230606
  4. FUROSEMIDE [Concomitant]
     Active Substance: FUROSEMIDE
     Indication: Oedema
     Dosage: 20 MG, QD,MORNING
     Route: 048
     Dates: start: 20230126, end: 20230524
  5. PERJETA [Concomitant]
     Active Substance: PERTUZUMAB
     Indication: Colon cancer
  6. HERCEPTIN [Concomitant]
     Active Substance: TRASTUZUMAB
     Indication: Colon cancer

REACTIONS (10)
  - Rectal cancer metastatic [Fatal]
  - Metastases to liver [Fatal]
  - Suspected drug-induced liver injury [Not Recovered/Not Resolved]
  - Transaminases increased [None]
  - Hyperbilirubinaemia [Not Recovered/Not Resolved]
  - Renal impairment [None]
  - Malaise [None]
  - Decreased appetite [None]
  - Yellow skin [None]
  - Off label use [None]

NARRATIVE: CASE EVENT DATE: 20230309
